FAERS Safety Report 4841646-6 (Version None)
Quarter: 2005Q4

REPORT INFORMATION
  Report Type: 
  Country: None (occurrence: None)
  Receive Date: 20051130
  Receipt Date: 20050915
  Transmission Date: 20060501
  Serious: No
  Sender: FDA-Public Use
  Company Number: US-GLAXOSMITHKLINE-A0574410A

PATIENT
  Age: 40 Year
  Sex: Female

DRUGS (5)
  1. WELLBUTRIN XL [Suspect]
     Indication: DEPRESSION
     Dosage: 450MG PER DAY
     Route: 048
  2. EFFEXOR [Concomitant]
  3. TRANXENE [Concomitant]
  4. KLONOPIN [Concomitant]
  5. VITAMINS [Concomitant]

REACTIONS (4)
  - AGITATION [None]
  - DEPRESSED MOOD [None]
  - DIZZINESS [None]
  - SOCIAL PHOBIA [None]
